FAERS Safety Report 18050785 (Version 2)
Quarter: 2020Q3

REPORT INFORMATION
  Report Type: Spontaneous
  Country: BR (occurrence: BR)
  Receive Date: 20200721
  Receipt Date: 20200814
  Transmission Date: 20201103
  Serious: Yes (Life-Threatening, Hospitalization, Disabling, Other)
  Sender: FDA-Public Use
  Company Number: BR-TORRENT-00005391

PATIENT
  Age: 22 Year
  Sex: Female

DRUGS (4)
  1. LAMITOR [Suspect]
     Active Substance: LAMOTRIGINE
     Indication: BIPOLAR DISORDER
     Dosage: HALF OF A TABLET
     Route: 048
     Dates: start: 20190819, end: 2019
  2. NIMESULIDE [Concomitant]
     Active Substance: NIMESULIDE
     Indication: PRODUCT USED FOR UNKNOWN INDICATION
     Dosage: UNKNOWN
     Dates: end: 2019
  3. CIPROFLOXACIN. [Concomitant]
     Active Substance: CIPROFLOXACIN
     Indication: URINARY TRACT INFECTION
     Dosage: UNKNOWN
     Dates: start: 20190908, end: 20190908
  4. EUDOK [Concomitant]
     Indication: BIPOLAR DISORDER
     Dosage: UNKNOWN
     Dates: start: 201908

REACTIONS (21)
  - Alopecia [Not Recovered/Not Resolved]
  - Infection [Unknown]
  - Skin discolouration [Not Recovered/Not Resolved]
  - Toothache [Not Recovered/Not Resolved]
  - Plasmapheresis [Unknown]
  - Haematemesis [Unknown]
  - Mouth haemorrhage [Not Recovered/Not Resolved]
  - Onychomadesis [Unknown]
  - Neck pain [Unknown]
  - Vomiting [Unknown]
  - Toxic epidermal necrolysis [Not Recovered/Not Resolved]
  - Epistaxis [Not Recovered/Not Resolved]
  - Blindness [Not Recovered/Not Resolved]
  - Asthenia [Unknown]
  - Haemorrhage [Unknown]
  - Lip haemorrhage [Unknown]
  - Mastication disorder [Not Recovered/Not Resolved]
  - Pain [Not Recovered/Not Resolved]
  - Crying [Unknown]
  - Angioedema [Unknown]
  - Insomnia [Unknown]

NARRATIVE: CASE EVENT DATE: 2019
